FAERS Safety Report 9224300 (Version 1)
Quarter: 2013Q2

REPORT INFORMATION
  Report Type: Spontaneous
  Country: US (occurrence: None)
  Receive Date: 20130409
  Receipt Date: 20130409
  Transmission Date: 20140414
  Serious: No
  Sender: FDA-Public Use
  Company Number: None

PATIENT
  Sex: Female

DRUGS (1)
  1. FLUTICASONE [Suspect]
     Indication: RHINITIS ALLERGIC
     Dosage: 1 SPRAY EACH NOSTRIL
     Route: 055
     Dates: start: 20130202, end: 20130220

REACTIONS (2)
  - Drug intolerance [None]
  - Drug ineffective [None]
